FAERS Safety Report 8974940 (Version 2)
Quarter: 2013Q1

REPORT INFORMATION
  Report Type: Spontaneous
  Country: DE (occurrence: DE)
  Receive Date: 20121219
  Receipt Date: 20130107
  Transmission Date: 20140127
  Serious: Yes (Other)
  Sender: FDA-Public Use
  Company Number: DE-ALEXION PHARMACEUTICALS INC.-A201202450

PATIENT
  Age: 18 Year
  Sex: Female

DRUGS (2)
  1. SOLIRIS 300MG [Suspect]
     Indication: HAEMOLYTIC URAEMIC SYNDROME
     Dosage: 600 MG, SINGLE
     Route: 042
  2. CONTRACEPTIVES NOS [Concomitant]

REACTIONS (3)
  - Haemolytic uraemic syndrome [Unknown]
  - Disease recurrence [Unknown]
  - Renal failure chronic [Not Recovered/Not Resolved]
